FAERS Safety Report 13473819 (Version 2)
Quarter: 2017Q2

REPORT INFORMATION
  Report Type: Report from Study
  Country: CA (occurrence: CA)
  Receive Date: 20170424
  Receipt Date: 20170505
  Transmission Date: 20170830
  Serious: Yes (Death, Hospitalization)
  Sender: FDA-Public Use
  Company Number: CA-HLSUS-2017-CA-000404

PATIENT
  Age: 78 Year
  Sex: Female

DRUGS (8)
  1. RIVASTIGMINE. [Concomitant]
     Active Substance: RIVASTIGMINE
     Dosage: 4.5 MG BID
     Route: 048
     Dates: start: 201110, end: 201702
  2. SALBUTAMOL [Concomitant]
     Active Substance: ALBUTEROL
     Dosage: 2 PUFFS BID
  3. DIGOXIN. [Concomitant]
     Active Substance: DIGOXIN
     Dosage: 0.125 MG
     Route: 048
     Dates: start: 2016
  4. CLOZARIL [Suspect]
     Active Substance: CLOZAPINE
     Indication: DEMENTIA
     Dosage: 25 BID AND 50 MG HS, DOSE DECREASED ON HOSPITAL ADMISSION, 24-FEB-2017
     Route: 048
     Dates: start: 201110, end: 201702
  5. TELMISARTAN. [Concomitant]
     Active Substance: TELMISARTAN
     Dosage: 40 MG
     Route: 048
     Dates: start: 2013
  6. VERAPAMIL [Concomitant]
     Active Substance: VERAPAMIL HYDROCHLORIDE
     Dosage: 360 MG DAILY
     Dates: start: 2013
  7. VENLAFAXINE [Concomitant]
     Active Substance: VENLAFAXINE HYDROCHLORIDE
     Dosage: 75 MG BID
     Route: 048
     Dates: start: 2011, end: 201702
  8. METFORMIN [Concomitant]
     Active Substance: METFORMIN HYDROCHLORIDE
     Dosage: 250 MG BID
     Route: 048
     Dates: start: 2013

REACTIONS (7)
  - Dementia [Unknown]
  - Dyskinesia [Unknown]
  - Pneumonia aspiration [Unknown]
  - Hypophagia [Unknown]
  - Dehydration [Unknown]
  - General physical health deterioration [Fatal]
  - Urinary tract infection [Fatal]

NARRATIVE: CASE EVENT DATE: 201610
